FAERS Safety Report 21919101 (Version 1)
Quarter: 2023Q1

REPORT INFORMATION
  Report Type: Spontaneous
  Country: IT (occurrence: IT)
  Receive Date: 20230127
  Receipt Date: 20230127
  Transmission Date: 20230418
  Serious: Yes (Hospitalization)
  Sender: FDA-Public Use
  Company Number: IT-MINISAL02-903684

PATIENT
  Age: 13 Year
  Sex: Male

DRUGS (5)
  1. IRINOTECAN [Suspect]
     Active Substance: IRINOTECAN
     Indication: Ewing^s sarcoma metastatic
     Dosage: 50 MILLIGRAM/SQ. METER
     Route: 040
     Dates: start: 20221128, end: 20221202
  2. TEMOZOLOMIDE [Interacting]
     Active Substance: TEMOZOLOMIDE
     Indication: Ewing^s sarcoma metastatic
     Dosage: 100 MILLIGRAM/SQ. METER
     Route: 048
     Dates: start: 20221128, end: 20221202
  3. ONDANSETRON [Concomitant]
     Active Substance: ONDANSETRON
     Indication: Prophylaxis of nausea and vomiting
     Dosage: 8 MILLIGRAM, DAILY
     Route: 040
     Dates: start: 20221128, end: 20221202
  4. DEXAMETHASONE [Concomitant]
     Active Substance: DEXAMETHASONE
     Indication: Prophylaxis of nausea and vomiting
     Dosage: 8 MILLIGRAM
     Route: 040
     Dates: start: 20221128, end: 20221202
  5. CEFIXIME [Concomitant]
     Active Substance: CEFIXIME
     Indication: Thrombosis prophylaxis
     Dosage: 400 MILLIGRAM, DAILY
     Route: 048
     Dates: start: 20221125, end: 20221207

REACTIONS (4)
  - Diarrhoea [Recovered/Resolved]
  - Vomiting [Recovered/Resolved]
  - Electrolyte imbalance [Recovered/Resolved]
  - Nausea [Recovered/Resolved]

NARRATIVE: CASE EVENT DATE: 20221209
